FAERS Safety Report 14296612 (Version 1)
Quarter: 2017Q4

REPORT INFORMATION
  Report Type: Spontaneous
  Country: US (occurrence: US)
  Receive Date: 20171215
  Receipt Date: 20171215
  Transmission Date: 20180321
  Serious: Yes (Disabling)
  Sender: FDA-Public Use
  Company Number: None

PATIENT
  Sex: Male
  Weight: 65.77 kg

DRUGS (6)
  1. VITAMIN C [Concomitant]
     Active Substance: ASCORBIC ACID
  2. ALL TOPICAL STEROIDS [Suspect]
     Active Substance: UNSPECIFIED INGREDIENT
     Indication: ECZEMA
     Dates: start: 19960702, end: 20160601
  3. VITAMIN B [Concomitant]
     Active Substance: VITAMIN B
  4. VITAMIN D [Concomitant]
     Active Substance: CHOLECALCIFEROL
  5. VITAMIN E [Concomitant]
     Active Substance: .ALPHA.-TOCOPHEROL
  6. VITAMIN A [Concomitant]
     Active Substance: VITAMIN A

REACTIONS (10)
  - Overdose [None]
  - Pruritus [None]
  - Food intolerance [None]
  - Application site erythema [None]
  - Wound secretion [None]
  - Eczema [None]
  - Asthenia [None]
  - Product measured potency issue [None]
  - Skin hypertrophy [None]
  - Burning sensation [None]

NARRATIVE: CASE EVENT DATE: 19960702
